FAERS Safety Report 16770273 (Version 3)
Quarter: 2019Q4

REPORT INFORMATION
  Report Type: Report from Study
  Country: US (occurrence: US)
  Receive Date: 20190904
  Receipt Date: 20191227
  Transmission Date: 20200122
  Serious: Yes (Death, Hospitalization, Other)
  Sender: FDA-Public Use
  Company Number: US-ASTELLAS-2019US034822

PATIENT
  Age: 61 Year
  Sex: Male

DRUGS (2)
  1. ASP2215 [Suspect]
     Active Substance: GILTERITINIB
     Indication: ACUTE MONOCYTIC LEUKAEMIA
     Route: 048
     Dates: start: 20190807, end: 20191215
  2. ASP2215 [Suspect]
     Active Substance: GILTERITINIB
     Indication: ACUTE MONOCYTIC LEUKAEMIA

REACTIONS (16)
  - Death [Fatal]
  - Muscular weakness [Unknown]
  - Urinary incontinence [Unknown]
  - Back disorder [Unknown]
  - Abdominal pain upper [Unknown]
  - Pyrexia [Unknown]
  - Confusional state [Unknown]
  - Asthenia [Unknown]
  - Dysuria [Unknown]
  - Somnolence [Unknown]
  - Decreased appetite [Unknown]
  - Chromaturia [Unknown]
  - Heart rate irregular [Unknown]
  - Weight decreased [Unknown]
  - Insomnia [Unknown]
  - Anal incontinence [Unknown]

NARRATIVE: CASE EVENT DATE: 201911
